FAERS Safety Report 6631073-3 (Version None)
Quarter: 2010Q1

REPORT INFORMATION
  Report Type: 
  Country: None (occurrence: None)
  Receive Date: 20100311
  Receipt Date: 20100308
  Transmission Date: 20100710
  Serious: Yes (Other)
  Sender: FDA-Public Use
  Company Number: DK-MERCK-1002DNK00002

PATIENT
  Age: 26 Year
  Sex: Male
  Weight: 70 kg

DRUGS (3)
  1. SINGULAIR [Suspect]
     Indication: ASTHMA
     Route: 048
     Dates: start: 20081126, end: 20091120
  2. SYMBICORT [Concomitant]
     Route: 055
  3. RHINOCORT [Concomitant]
     Route: 055

REACTIONS (7)
  - AGGRESSION [None]
  - DEPRESSION [None]
  - HALLUCINATION [None]
  - IRRITABILITY [None]
  - MENTAL STATUS CHANGES [None]
  - NIGHTMARE [None]
  - TACHYPHRENIA [None]
